FAERS Safety Report 6915755-1 (Version None)
Quarter: 2010Q3

REPORT INFORMATION
  Report Type: 
  Country: None (occurrence: None)
  Receive Date: 20100810
  Receipt Date: 20100519
  Transmission Date: 20110219
  Serious: No
  Sender: FDA-Public Use
  Company Number: A0863582A

PATIENT
  Sex: Female

DRUGS (2)
  1. PAXIL CR [Suspect]
     Indication: PRODUCT USED FOR UNKNOWN INDICATION
  2. SEROQUEL [Concomitant]

REACTIONS (2)
  - DIZZINESS [None]
  - MALAISE [None]
